FAERS Safety Report 6291688-1 (Version None)
Quarter: 2009Q3

REPORT INFORMATION
  Report Type: 
  Country: None (occurrence: None)
  Receive Date: 20090730
  Receipt Date: 20090730
  Transmission Date: 20100115
  Serious: Yes (Life-Threatening, Hospitalization)
  Sender: FDA-Public Use
  Company Number: None

PATIENT
  Age: 39 Year
  Sex: Male
  Weight: 72.5755 kg

DRUGS (2)
  1. HUMIRA [Suspect]
     Indication: PSORIASIS
     Dosage: 1 WEEKLY IM
     Route: 030
     Dates: start: 20080506, end: 20080901
  2. HUMIRA [Suspect]
     Indication: PSORIATIC ARTHROPATHY
     Dosage: 1 WEEKLY IM
     Route: 030
     Dates: start: 20080506, end: 20080901

REACTIONS (7)
  - BLASTOMYCOSIS [None]
  - CARDIO-RESPIRATORY ARREST [None]
  - ORGAN FAILURE [None]
  - PNEUMONIA [None]
  - RESPIRATORY FAILURE [None]
  - SCAR [None]
  - SINUSITIS [None]
